FAERS Safety Report 7033047-X (Version None)
Quarter: 2010Q4

REPORT INFORMATION
  Report Type: 
  Country: None (occurrence: None)
  Receive Date: 20101007
  Receipt Date: 20100929
  Transmission Date: 20110411
  Serious: Yes (Other)
  Sender: FDA-Public Use
  Company Number: BE-PFIZER INC-2010115748

PATIENT
  Age: 58 Year
  Sex: Female
  Weight: 74 kg

DRUGS (1)
  1. SUTENT [Suspect]
     Indication: METASTATIC RENAL CELL CARCINOMA
     Dosage: 50 MG, 4 WEEKS ON, 2 WEEKS OFF
     Route: 048
     Dates: start: 20080321, end: 20091029

REACTIONS (2)
  - MYOSITIS [None]
  - PALMAR-PLANTAR ERYTHRODYSAESTHESIA SYNDROME [None]
